FAERS Safety Report 9874620 (Version 2)
Quarter: 2014Q1

REPORT INFORMATION
  Report Type: Spontaneous
  Country: JP (occurrence: JP)
  Receive Date: 20140206
  Receipt Date: 20140306
  Transmission Date: 20141002
  Serious: Yes (Other)
  Sender: FDA-Public Use
  Company Number: JP-BRISTOL-MYERS SQUIBB COMPANY-20124988

PATIENT
  Sex: Male

DRUGS (1)
  1. ABILIFY [Suspect]
     Indication: SCHIZOPHRENIA
     Dosage: INITIALLY 12 MG AND THEN INCREASED TO 24 MG
     Dates: start: 20101224

REACTIONS (3)
  - Abortion [Recovered/Resolved]
  - Exposure via father [Unknown]
  - Pregnancy [Recovered/Resolved]
